FAERS Safety Report 10359388 (Version 1)
Quarter: 2014Q3

REPORT INFORMATION
  Report Type: Spontaneous
  Country: DE (occurrence: DE)
  Receive Date: 20140804
  Receipt Date: 20140804
  Transmission Date: 20150326
  Serious: Yes (Other)
  Sender: FDA-Public Use
  Company Number: DE-JNJFOC-20140716168

PATIENT
  Age: 58 Year
  Sex: Male

DRUGS (10)
  1. CYTOSINE ARABINOSIDE [Suspect]
     Active Substance: CYTARABINE
     Indication: ENTEROPATHY-ASSOCIATED T-CELL LYMPHOMA
     Dosage: ON DAYS -6 TO -3
     Route: 065
  2. BICNU [Suspect]
     Active Substance: CARMUSTINE
     Indication: ENTEROPATHY-ASSOCIATED T-CELL LYMPHOMA
     Dosage: ON DAY -7
     Route: 050
  3. MELPHALAN [Suspect]
     Active Substance: MELPHALAN
     Indication: ENTEROPATHY-ASSOCIATED T-CELL LYMPHOMA
     Dosage: ON DAY-2
     Route: 065
  4. CYTOSINE ARABINOSIDE [Suspect]
     Active Substance: CYTARABINE
     Indication: ENTEROPATHY-ASSOCIATED T-CELL LYMPHOMA
     Dosage: ON DAYS 1 TO 5
     Route: 065
  5. CLADRIBINE. [Suspect]
     Active Substance: CLADRIBINE
     Indication: ENTEROPATHY-ASSOCIATED T-CELL LYMPHOMA
     Dosage: ON DAYS 1 TO 5
     Route: 042
  6. ETOPOSIDE. [Suspect]
     Active Substance: ETOPOSIDE
     Indication: ENTEROPATHY-ASSOCIATED T-CELL LYMPHOMA
     Dosage: ON DAYS -6 TO -3
     Route: 065
  7. ETOPOSIDE. [Suspect]
     Active Substance: ETOPOSIDE
     Indication: ENTEROPATHY-ASSOCIATED T-CELL LYMPHOMA
     Dosage: ON DAYS 1 TO 5
     Route: 065
  8. FILGRASTIM [Suspect]
     Active Substance: FILGRASTIM
     Indication: ENTEROPATHY-ASSOCIATED T-CELL LYMPHOMA
     Dosage: FROM DAY 6
     Route: 065
  9. CYCLOPHOSPHAMIDE. [Suspect]
     Active Substance: CYCLOPHOSPHAMIDE
     Indication: ENTEROPATHY-ASSOCIATED T-CELL LYMPHOMA
     Route: 065
  10. ALEMTUZUMAB [Suspect]
     Active Substance: ALEMTUZUMAB
     Indication: ENTEROPATHY-ASSOCIATED T-CELL LYMPHOMA
     Route: 042

REACTIONS (3)
  - Drug resistance [Unknown]
  - Off label use [Unknown]
  - Enteropathy-associated T-cell lymphoma [Unknown]
